FAERS Safety Report 5044002-3 (Version None)
Quarter: 2006Q2

REPORT INFORMATION
  Report Type: 
  Country: None (occurrence: None)
  Receive Date: 20060601
  Receipt Date: 20060403
  Transmission Date: 20061013
  Serious: No
  Sender: FDA-Public Use
  Company Number: US200604000501

PATIENT
  Age: 46 Year
  Sex: Female

DRUGS (5)
  1. CYMBALTA [Suspect]
     Indication: PAIN
     Dosage: 30 MG, 2/D
     Dates: start: 20060331
  2. XANAX [Concomitant]
  3. HYDROCHLOROTHIAZIDE [Concomitant]
  4. MONOPRIL [Concomitant]
  5. ACIPHEX [Concomitant]

REACTIONS (4)
  - MALAISE [None]
  - MENSTRUATION IRREGULAR [None]
  - NAUSEA [None]
  - SOMNOLENCE [None]
